FAERS Safety Report 18286560 (Version 1)
Quarter: 2020Q3

REPORT INFORMATION
  Report Type: Spontaneous
  Country: US (occurrence: US)
  Receive Date: 20200920
  Receipt Date: 20200920
  Transmission Date: 20201103
  Serious: Yes (Other)
  Sender: FDA-Public Use
  Company Number: US-ROCHE-2675764

PATIENT
  Age: 56 Year
  Sex: Female
  Weight: 78.09 kg

DRUGS (2)
  1. ASPRIN [Concomitant]
     Active Substance: ASPIRIN
  2. OCREVUS [Suspect]
     Active Substance: OCRELIZUMAB
     Indication: RELAPSING MULTIPLE SCLEROSIS
     Route: 042
     Dates: start: 2018

REACTIONS (8)
  - Speech disorder [Unknown]
  - Mental impairment [Unknown]
  - Tremor [Unknown]
  - Drug screen false positive [Unknown]
  - Gait disturbance [Unknown]
  - Condition aggravated [Unknown]
  - Oral disorder [Unknown]
  - Grip strength decreased [Unknown]

NARRATIVE: CASE EVENT DATE: 20200706
